FAERS Safety Report 8713608 (Version 5)
Quarter: 2014Q2

REPORT INFORMATION
  Report Type: Spontaneous
  Country: IT (occurrence: IT)
  Receive Date: 20120808
  Receipt Date: 20131212
  Transmission Date: 20141212
  Serious: Yes (Hospitalization)
  Sender: FDA-Public Use
  Company Number: IT-ALEXION PHARMACEUTICALS INC.-A201201441

PATIENT
  Age: 62 Year
  Sex: Female

DRUGS (4)
  1. SOLIRIS 300MG [Suspect]
     Indication: HAEMOLYTIC URAEMIC SYNDROME
     Dosage: 900 MG, QW
     Route: 042
     Dates: start: 20120427, end: 20120525
  2. SOLIRIS 300MG [Suspect]
     Indication: OFF LABEL USE
     Dosage: 900 MG, UNK
     Route: 042
     Dates: start: 20120608, end: 20120608
  3. SOLIRIS 300MG [Suspect]
     Dosage: 1200 MG, UNK
     Route: 042
     Dates: start: 20120622, end: 20120622
  4. RIVOTRIL [Concomitant]

REACTIONS (3)
  - Cholecystitis [Recovering/Resolving]
  - Cytomegalovirus infection [Recovering/Resolving]
  - Off label use [Unknown]
